FAERS Safety Report 8122983-9 (Version None)
Quarter: 2012Q1

REPORT INFORMATION
  Report Type: 
  Country: None (occurrence: None)
  Receive Date: 20120208
  Receipt Date: 20120120
  Transmission Date: 20120608
  Serious: Yes (Hospitalization)
  Sender: FDA-Public Use
  Company Number: US-PFIZER INC-K200900547

PATIENT
  Age: 73 Year
  Sex: Female

DRUGS (12)
  1. RAMIPRIL [Suspect]
     Indication: HYPERTENSION
     Dosage: 10 MG, 1X/DAY
     Route: 048
     Dates: end: 20090320
  2. BYETTA [Interacting]
     Indication: DIABETES MELLITUS
     Dosage: 20 IU,*10**3, 1X/DAY
     Route: 058
     Dates: start: 20081001, end: 20090320
  3. GLYBURIDE [Concomitant]
     Dosage: UNK
     Route: 048
  4. GLUCOPHAGE [Concomitant]
     Dosage: UNK
     Route: 048
  5. RAMIPRIL [Interacting]
     Dosage: UNK
     Route: 048
     Dates: start: 20090322, end: 20090324
  6. NIFEDIPINE [Concomitant]
     Dosage: UNK
  7. CORDARONE [Concomitant]
     Dosage: UNK
  8. PRAZOSIN HCL [Concomitant]
     Dosage: UNK
  9. ALDACTONE [Interacting]
     Dosage: 50 MG, 1X/DAY
     Route: 048
     Dates: end: 20090320
  10. FLECAINIDE ACETATE [Concomitant]
     Dosage: UNK
     Route: 048
  11. OLMESARTAN MEDOXOMIL AND HYDROCHLOROTHIZIDE [Interacting]
     Indication: HYPERTENSION
     Dosage: 1 IU, 1X/DAY
     Route: 048
  12. PREVISCAN [Concomitant]
     Dosage: UNK
     Route: 048

REACTIONS (6)
  - HYPERKALAEMIA [None]
  - BRADYCARDIA [None]
  - MALAISE [None]
  - DRUG INTERACTION [None]
  - RENAL FAILURE ACUTE [None]
  - ASTHENIA [None]
